FAERS Safety Report 10637460 (Version 3)
Quarter: 2015Q3

REPORT INFORMATION
  Report Type: Spontaneous
  Country: FR (occurrence: None)
  Receive Date: 20141204
  Receipt Date: 20150728
  Transmission Date: 20151125
  Serious: Yes (Hospitalization)
  Sender: FDA-Public Use
  Company Number: FR-2014-4498

PATIENT
  Age: 55 Year
  Sex: Male

DRUGS (21)
  1. ONDANSETRON. [Suspect]
     Active Substance: ONDANSETRON
     Indication: NAUSEA
     Dates: start: 20140918, end: 20140918
  2. DOMPERIDONE [Suspect]
     Active Substance: DOMPERIDONE
     Indication: NAUSEA
     Route: 048
  3. GABAPENTINE (GABAPENTIN) [Concomitant]
  4. EMEND [Suspect]
     Active Substance: APREPITANT
     Indication: NAUSEA
     Dates: start: 20140918, end: 20140918
  5. DIAMICRON (GLICLAZIDE) [Concomitant]
     Active Substance: GLICLAZIDE
  6. CISPLATIN (CISPLATIN) [Suspect]
     Active Substance: CISPLATIN
     Indication: LUNG ADENOCARCINOMA
     Route: 042
     Dates: start: 20140918, end: 20140918
  7. ZAMUDOL [Suspect]
     Active Substance: TRAMADOL HYDROCHLORIDE
     Indication: PAIN
     Dosage: 50 MG,IN THE EVENING
     Route: 048
  8. ESOMEPRAZOLE (ESOMEPRAZOLE) [Suspect]
     Active Substance: ESOMEPRAZOLE
     Indication: PRODUCT USED FOR UNKNOWN INDICATION
     Route: 048
     Dates: start: 20140918
  9. GLUCOPHAGE [Concomitant]
     Active Substance: METFORMIN HYDROCHLORIDE
  10. LAROXYL (AMITRIPTYLINE HYDROCHLORIDE) [Concomitant]
  11. MODOPAR [Suspect]
     Active Substance: BENSERAZIDE HYDROCHLORIDE\LEVODOPA
     Indication: RESTLESS LEGS SYNDROME
     Route: 048
     Dates: start: 20140917, end: 20140923
  12. EUCREAS (METFORMIN HYDROCHLORIDE, VIDAGLIPTIN) [Concomitant]
  13. LEVOTHYROX (LEVOTHYROXINE SODIUM) [Concomitant]
     Active Substance: LEVOTHYROXINE SODIUM
  14. METHYLPREDNISOLON (METHYLPREDNISOLONE) [Concomitant]
  15. OXYNORM [Suspect]
     Active Substance: OXYCODONE HYDROCHLORIDE
     Indication: PAIN
     Route: 048
     Dates: start: 20140918, end: 20140923
  16. PRAVASTATIN (PRAVASTATIN SODIUM) [Concomitant]
  17. RAMIPRIL (RAMIPRIL) [Concomitant]
     Active Substance: RAMIPRIL
  18. SIFROL (PRAMIPEXOLE DIHYDROCHLORIDE) [Concomitant]
  19. PLAVIX (CLOPIDOGREL BISULFATE) [Concomitant]
  20. NAVELBINE [Suspect]
     Active Substance: VINORELBINE TARTRATE
     Indication: LUNG ADENOCARCINOMA
     Route: 042
     Dates: start: 20140918
  21. CONTRAMAL [Suspect]
     Active Substance: TRAMADOL HYDROCHLORIDE
     Indication: PAIN
     Route: 048
     Dates: start: 20140918, end: 20140923

REACTIONS (14)
  - Anaemia [None]
  - Coagulation factor VII level decreased [None]
  - Dehydration [None]
  - Coagulation factor V level decreased [None]
  - Hepatitis fulminant [None]
  - Thrombocytopenia [None]
  - Acute kidney injury [None]
  - Coagulation factor X level decreased [None]
  - Prothrombin level decreased [None]
  - Overdose [None]
  - Vomiting [None]
  - Hepatocellular injury [None]
  - Prothrombin time prolonged [None]
  - Infection [None]

NARRATIVE: CASE EVENT DATE: 20140923
